FAERS Safety Report 25085211 (Version 2)
Quarter: 2025Q2

REPORT INFORMATION
  Report Type: Spontaneous
  Country: CN (occurrence: CN)
  Receive Date: 20250317
  Receipt Date: 20250414
  Transmission Date: 20250717
  Serious: Yes (Hospitalization)
  Sender: COHERUS
  Company Number: CN-SHANGHAI JUNSHI BIOSCIENCES CO., LTD.-CN2025013354

PATIENT

DRUGS (24)
  1. TORIPALIMAB [Suspect]
     Active Substance: TORIPALIMAB
     Indication: Invasive breast carcinoma
     Route: 041
  2. TORIPALIMAB [Suspect]
     Active Substance: TORIPALIMAB
     Dosage: 240 MG (D8), Q21D
     Route: 041
     Dates: start: 20250203, end: 20250224
  3. TORIPALIMAB [Suspect]
     Active Substance: TORIPALIMAB
     Dosage: 240 MG (D8), Q21D
     Route: 041
     Dates: start: 20250319
  4. PACLITAXEL [Suspect]
     Active Substance: PACLITAXEL
     Indication: Invasive breast carcinoma
     Dosage: 200 MG (D1?D8), 21 DAYS AS A CYCLE, ADMINISTER FOR 2 CYCLE
     Route: 041
     Dates: start: 20241117
  5. PACLITAXEL [Suspect]
     Active Substance: PACLITAXEL
  6. PACLITAXEL [Suspect]
     Active Substance: PACLITAXEL
     Dosage: 200 MG (D1?D8), 21 DAYS AS A CYCLE
     Route: 041
     Dates: start: 20250203, end: 20250210
  7. PACLITAXEL [Suspect]
     Active Substance: PACLITAXEL
     Dosage: 200 MG (D1?D8), 21 DAYS AS A CYCLE
     Route: 041
     Dates: start: 20250224, end: 20250224
  8. PACLITAXEL [Suspect]
     Active Substance: PACLITAXEL
     Dosage: 200 MG (D1), 21 DAYS AS A CYCLE
     Route: 041
     Dates: start: 20250319, end: 20250319
  9. PACLITAXEL [Suspect]
     Active Substance: PACLITAXEL
     Dosage: 100 MG (D8), 21 DAYS AS A CYCLE
     Route: 041
     Dates: start: 20250319
  10. CARBOPLATIN [Suspect]
     Active Substance: CARBOPLATIN
     Indication: Invasive breast carcinoma
     Dosage: 300 MG (D1?D8), 21 DAYS AS A CYCLE, ADMINISTER FOR 2 CYCLE
     Route: 041
     Dates: start: 20241117
  11. CARBOPLATIN [Suspect]
     Active Substance: CARBOPLATIN
  12. CARBOPLATIN [Suspect]
     Active Substance: CARBOPLATIN
     Dosage: 300 MG (D1?D8), 21 DAYS AS A CYCLE
     Route: 041
     Dates: start: 20250203, end: 20250210
  13. CARBOPLATIN [Suspect]
     Active Substance: CARBOPLATIN
     Dosage: 400 MG (D1), 21 DAYS AS A CYCLE
     Route: 041
     Dates: start: 20250224, end: 20250224
  14. CARBOPLATIN [Suspect]
     Active Substance: CARBOPLATIN
     Dosage: 300 MG (D1), 21 DAYS AS A CYCLE
     Route: 041
     Dates: start: 20250224, end: 20250224
  15. CISPLATIN [Suspect]
     Active Substance: CISPLATIN
     Indication: Invasive breast carcinoma
     Dosage: 30 MG (D1-D3, QD), 21 DAYS AS A CYCLE
     Route: 041
     Dates: start: 20250319, end: 20250322
  16. SODIUM CHLORIDE [Concomitant]
     Active Substance: SODIUM CHLORIDE
     Indication: Medication dilution
     Dosage: 40 ML (D1?D8), 21 DAYS AS A CYCLE,ADMINISTER FOR 2 CYCLE
     Route: 041
     Dates: start: 20241117
  17. SODIUM CHLORIDE [Concomitant]
     Active Substance: SODIUM CHLORIDE
     Dosage: 40 ML (D1?D8), 21 DAYS AS A CYCLE
     Route: 041
     Dates: start: 20250203, end: 20250210
  18. SODIUM CHLORIDE [Concomitant]
     Active Substance: SODIUM CHLORIDE
     Dosage: 100 ML (D8), 21 DAYS AS A CYCLE
     Route: 041
     Dates: start: 20250203, end: 20250203
  19. SODIUM CHLORIDE [Concomitant]
     Active Substance: SODIUM CHLORIDE
     Dosage: 40 ML (D1?D8), 21 DAYS AS A CYCLE
     Route: 041
     Dates: start: 20250224, end: 20250224
  20. SODIUM CHLORIDE [Concomitant]
     Active Substance: SODIUM CHLORIDE
     Dosage: 100 ML (D8), 21 DAYS AS A CYCLE
     Route: 041
     Dates: start: 20250224, end: 20250224
  21. SODIUM CHLORIDE [Concomitant]
     Active Substance: SODIUM CHLORIDE
     Route: 041
     Dates: start: 20250203, end: 20250210
  22. DEXTROSE [Concomitant]
     Active Substance: DEXTROSE MONOHYDRATE
     Indication: Medication dilution
     Dosage: 500 ML (D1?D8), 21 DAYS AS A CYCLE, ADMINISTER FOR 2 CYCLE
     Route: 041
     Dates: start: 20241117
  23. DEXTROSE [Concomitant]
     Active Substance: DEXTROSE MONOHYDRATE
     Dosage: 500 ML (D1, D8), 21 DAYS AS A CYCLE
     Route: 041
     Dates: start: 20250203, end: 20250210
  24. DEXTROSE [Concomitant]
     Active Substance: DEXTROSE MONOHYDRATE
     Dosage: 500 ML (D1, D8), 21 DAYS AS A CYCLE
     Route: 041
     Dates: start: 20250203, end: 20250210

REACTIONS (3)
  - Myelosuppression [Recovering/Resolving]
  - Chest discomfort [Recovering/Resolving]
  - Dyspnoea [Recovering/Resolving]

NARRATIVE: CASE EVENT DATE: 20250224
